FAERS Safety Report 7076406-1 (Version None)
Quarter: 2010Q4

REPORT INFORMATION
  Report Type: 
  Country: None (occurrence: None)
  Receive Date: 20101101
  Receipt Date: 20101018
  Transmission Date: 20110411
  Serious: Yes (Hospitalization)
  Sender: FDA-Public Use
  Company Number: DE-JNJFOC-20100702949

PATIENT
  Sex: Male
  Weight: 33.4 kg

DRUGS (2)
  1. INFLIXIMAB [Suspect]
     Indication: INFLAMMATORY BOWEL DISEASE
     Route: 042
  2. MESALAMINE [Concomitant]
     Route: 048

REACTIONS (2)
  - ANAL ABSCESS [None]
  - ANAL FISTULA [None]
